FAERS Safety Report 4345008-X (Version None)
Quarter: 2004Q2

REPORT INFORMATION
  Report Type: 
  Country: None (occurrence: None)
  Receive Date: 20040422
  Receipt Date: 20040422
  Transmission Date: 20050107
  Serious: Yes (Life-Threatening)
  Sender: FDA-Public Use
  Company Number: None

PATIENT
  Age: 60 Year
  Sex: Female

DRUGS (1)
  1. HURRICAINE SPRAY [Suspect]
     Dosage: TOPICAL FOR INTUBATION
     Route: 061

REACTIONS (1)
  - ACQUIRED METHAEMOGLOBINAEMIA [None]
